FAERS Safety Report 5796618-4 (Version None)
Quarter: 2008Q3

REPORT INFORMATION
  Report Type: 
  Country: None (occurrence: None)
  Receive Date: 20080701
  Receipt Date: 20080625
  Transmission Date: 20090109
  Serious: Yes (Death, Other)
  Sender: FDA-Public Use
  Company Number: MX-ABBOTT-08P-107-0455537-00

PATIENT
  Sex: Male
  Weight: 83 kg

DRUGS (1)
  1. KALETRA [Suspect]
     Indication: DRUG USE FOR UNKNOWN INDICATION
     Dosage: 400/100MG, TWO TIMES DAILY
     Dates: start: 20060725

REACTIONS (9)
  - ABSCESS [None]
  - DEAFNESS [None]
  - HEADACHE [None]
  - LYMPHADENOPATHY [None]
  - MULTIPLE MYELOMA [None]
  - OTITIS MEDIA [None]
  - PURULENT DISCHARGE [None]
  - PYREXIA [None]
  - WEIGHT DECREASED [None]
